FAERS Safety Report 7125065-8 (Version None)
Quarter: 2010Q4

REPORT INFORMATION
  Report Type: 
  Country: None (occurrence: None)
  Receive Date: 20101129
  Receipt Date: 20101008
  Transmission Date: 20110411
  Serious: Yes (Hospitalization, Other)
  Sender: FDA-Public Use
  Company Number: CA-AMGEN LTD.-KDL444804

PATIENT

DRUGS (12)
  1. NEUPOGEN [Suspect]
     Indication: PRODUCT USED FOR UNKNOWN INDICATION
     Dosage: 300 UNK, UNK
     Route: 058
     Dates: start: 20101005, end: 20101008
  2. NITRO-SPRAY [Concomitant]
     Indication: ANGINA PECTORIS
  3. NITRO-DUR [Concomitant]
     Indication: ANGINA PECTORIS
  4. ATENOLOL [Concomitant]
  5. ALTACE [Concomitant]
     Dosage: UNK
  6. CRESTOR [Concomitant]
  7. AMLODIPINE [Concomitant]
  8. FAMOTIDINE [Concomitant]
  9. ASPIRIN [Concomitant]
  10. FLOMAX [Concomitant]
  11. DOMPERIDONA [Concomitant]
  12. AVODART [Concomitant]

REACTIONS (4)
  - BUNDLE BRANCH BLOCK RIGHT [None]
  - CHEST PAIN [None]
  - CORONARY ARTERY OCCLUSION [None]
  - DEVICE OCCLUSION [None]
